FAERS Safety Report 10156714 (Version 2)
Quarter: 2014Q2

REPORT INFORMATION
  Report Type: Report from Study
  Country: DE (occurrence: DE)
  Receive Date: 20140507
  Receipt Date: 20140507
  Transmission Date: 20141212
  Serious: Yes (Death, Hospitalization, Other)
  Sender: FDA-Public Use
  Company Number: DE-JNJFOC-20120614025

PATIENT
  Age: 69 Year
  Sex: Male

DRUGS (4)
  1. REMICADE [Suspect]
     Indication: RHEUMATOID ARTHRITIS
     Route: 042
     Dates: start: 201004, end: 201104
  2. ABATACEPT [Concomitant]
     Indication: RHEUMATOID ARTHRITIS
     Route: 065
     Dates: start: 20110622
  3. METHOTREXATE [Concomitant]
     Indication: RHEUMATOID ARTHRITIS
     Route: 065
     Dates: start: 200207
  4. FOLIC ACID [Concomitant]
     Route: 065
     Dates: start: 200207

REACTIONS (5)
  - Convulsion [Fatal]
  - Myocardial infarction [Recovered/Resolved with Sequelae]
  - Hypoxic-ischaemic encephalopathy [Unknown]
  - Infusion related reaction [Unknown]
  - Genital abscess [Unknown]
